FAERS Safety Report 11876483 (Version 6)
Quarter: 2018Q2

REPORT INFORMATION
  Report Type: Spontaneous
  Country: US (occurrence: US)
  Receive Date: 20151229
  Receipt Date: 20180411
  Transmission Date: 20180711
  Serious: Yes (Hospitalization)
  Sender: FDA-Public Use
  Company Number: US-DSJP-DSU-2015-120837

PATIENT

DRUGS (1)
  1. BENICAR HCT [Suspect]
     Active Substance: HYDROCHLOROTHIAZIDE\OLMESARTAN MEDOXOMIL
     Indication: HYPERTENSION
     Dosage: 40/12.5 MG, QD
     Route: 048
     Dates: start: 20090127, end: 201012

REACTIONS (9)
  - Odynophagia [Unknown]
  - Oesophagitis [Unknown]
  - Anaemia [Not Recovered/Not Resolved]
  - Non-cardiac chest pain [Unknown]
  - Haemorrhoids [Unknown]
  - End stage renal disease [Not Recovered/Not Resolved]
  - Oesophageal stenosis [Unknown]
  - Sprue-like enteropathy [Not Recovered/Not Resolved]
  - Gastrooesophageal reflux disease [Not Recovered/Not Resolved]

NARRATIVE: CASE EVENT DATE: 200904
